FAERS Safety Report 9759755 (Version 3)
Quarter: 2015Q3

REPORT INFORMATION
  Report Type: Spontaneous
  Country: US (occurrence: US)
  Receive Date: 20131216
  Receipt Date: 20150806
  Transmission Date: 20151125
  Serious: No
  Sender: FDA-Public Use
  Company Number: US-GILEAD-2010-0029014

PATIENT
  Age: 69 Year
  Weight: 106.59 kg

DRUGS (22)
  1. XOPENEX [Concomitant]
     Active Substance: LEVALBUTEROL HYDROCHLORIDE
  2. CLONIDINE. [Concomitant]
     Active Substance: CLONIDINE
  3. ADCIRCA [Concomitant]
     Active Substance: TADALAFIL
  4. VITAMIN D [Concomitant]
     Active Substance: CHOLECALCIFEROL
  5. LASIX [Concomitant]
     Active Substance: FUROSEMIDE
  6. LEVEMIR [Concomitant]
     Active Substance: INSULIN DETEMIR
  7. GERITOL [Concomitant]
     Active Substance: MINERALS\VITAMINS
  8. NEXIUM [Concomitant]
     Active Substance: ESOMEPRAZOLE MAGNESIUM
  9. ALLOPURINOL. [Concomitant]
     Active Substance: ALLOPURINOL
  10. MUCINEX [Concomitant]
     Active Substance: GUAIFENESIN
  11. RESTASIS [Concomitant]
     Active Substance: CYCLOSPORINE
  12. LETAIRIS [Suspect]
     Active Substance: AMBRISENTAN
     Indication: PULMONARY ARTERIAL HYPERTENSION
     Route: 048
     Dates: start: 20090226
  13. ATACAND [Concomitant]
     Active Substance: CANDESARTAN CILEXETIL
  14. NOVOLIN [Concomitant]
     Active Substance: INSULIN HUMAN
  15. CELLCEPT [Concomitant]
     Active Substance: MYCOPHENOLATE MOFETIL\MYCOPHENOLATE MOFETIL HYDROCHLORIDE
  16. TYLENOL PM EX-STR [Concomitant]
  17. POTASSIUM CHLORIDE. [Concomitant]
     Active Substance: POTASSIUM CHLORIDE
  18. PREDNISONE. [Concomitant]
     Active Substance: PREDNISONE
  19. CHROMIUM PICO [Concomitant]
  20. HCTZ [Concomitant]
     Active Substance: HYDROCHLOROTHIAZIDE
  21. VITAMINS NOS [Concomitant]
     Active Substance: VITAMINS
  22. OXYGEN. [Concomitant]
     Active Substance: OXYGEN

REACTIONS (8)
  - Rash [Unknown]
  - Headache [Unknown]
  - Abdominal discomfort [Unknown]
  - Muscle spasms [Unknown]
  - Hearing impaired [Unknown]
  - Pain in extremity [Unknown]
  - Myalgia [Unknown]
  - Visual impairment [Unknown]

NARRATIVE: CASE EVENT DATE: 20100503
